FAERS Safety Report 20736655 (Version 1)
Quarter: 2022Q2

REPORT INFORMATION
  Report Type: Spontaneous
  Country: FR (occurrence: FR)
  Receive Date: 20220421
  Receipt Date: 20220421
  Transmission Date: 20220721
  Serious: Yes (Hospitalization)
  Sender: FDA-Public Use
  Company Number: None

PATIENT
  Age: 73 Year
  Sex: Female
  Weight: 77 kg

DRUGS (2)
  1. LETROZOLE [Suspect]
     Active Substance: LETROZOLE
     Indication: Breast cancer
     Dosage: 2.5 MILLIGRAM, QD, 2.5MG*1X/D
     Route: 048
     Dates: start: 201905
  2. IBRANCE [Suspect]
     Active Substance: PALBOCICLIB
     Indication: Breast cancer
     Dosage: 75 MILLIGRAM, QD, 75MG 1X/D
     Route: 048
     Dates: start: 201905

REACTIONS (1)
  - Cerebral venous thrombosis [Not Recovered/Not Resolved]

NARRATIVE: CASE EVENT DATE: 20220218
